FAERS Safety Report 21584663 (Version 1)
Quarter: 2022Q4

REPORT INFORMATION
  Report Type: Spontaneous
  Country: US (occurrence: US)
  Receive Date: 20221111
  Receipt Date: 20221111
  Transmission Date: 20230113
  Serious: No
  Sender: FDA-Public Use
  Company Number: US-ORGANON-O2210USA001050

PATIENT
  Sex: Male

DRUGS (1)
  1. DULERA [Suspect]
     Active Substance: FORMOTEROL FUMARATE DIHYDRATE\MOMETASONE FUROATE
     Dosage: 2 INHALATIONS/TWICE DAILY
     Dates: start: 20221011

REACTIONS (6)
  - Product dose omission issue [Unknown]
  - Poor quality device used [Unknown]
  - Device difficult to use [Unknown]
  - Device malfunction [Unknown]
  - Wrong technique in device usage process [Unknown]
  - No adverse event [Unknown]
